FAERS Safety Report 8080715-7 (Version None)
Quarter: 2012Q1

REPORT INFORMATION
  Report Type: 
  Country: None (occurrence: None)
  Receive Date: 20120130
  Receipt Date: 20120119
  Transmission Date: 20120608
  Serious: Yes (Other)
  Sender: FDA-Public Use
  Company Number: US-JNJFOC-20120109362

PATIENT
  Sex: Female
  Weight: 88.91 kg

DRUGS (3)
  1. REMICADE [Suspect]
     Indication: COLITIS ULCERATIVE
     Route: 042
     Dates: start: 20090101
  2. B12 SHOT [Concomitant]
     Indication: ANAEMIA
     Route: 065
     Dates: start: 19960101
  3. METHOTREXATE [Suspect]
     Indication: RHEUMATOID ARTHRITIS
     Route: 050
     Dates: start: 20110701, end: 20110101

REACTIONS (2)
  - RHEUMATOID ARTHRITIS [None]
  - MALAISE [None]
